FAERS Safety Report 15199585 (Version 1)
Quarter: 2018Q3

REPORT INFORMATION
  Report Type: Spontaneous
  Country: US (occurrence: US)
  Receive Date: 20180627
  Receipt Date: 20180627
  Transmission Date: 20181010
  Serious: Yes (Life-Threatening)
  Sender: FDA-Public Use
  Company Number: None

PATIENT
  Age: 56 Year
  Sex: Female
  Weight: 187.3 kg

DRUGS (1)
  1. ORITAVANCIN. [Suspect]
     Active Substance: ORITAVANCIN
     Indication: CELLULITIS
     Dosage: ?          OTHER FREQUENCY:ONCE;?
     Route: 042
     Dates: start: 20180501, end: 20180501

REACTIONS (6)
  - Tremor [None]
  - Blood pressure increased [None]
  - Anxiety [None]
  - Throat tightness [None]
  - Tachypnoea [None]
  - Feeling cold [None]

NARRATIVE: CASE EVENT DATE: 20180501
